FAERS Safety Report 5724857-7 (Version None)
Quarter: 2008Q2

REPORT INFORMATION
  Report Type: 
  Country: None (occurrence: None)
  Receive Date: 20080430
  Receipt Date: 20080430
  Transmission Date: 20081010
  Serious: Yes (Hospitalization)
  Sender: FDA-Public Use
  Company Number: None

PATIENT
  Sex: Female
  Weight: 95.5 kg

DRUGS (2)
  1. CYCLOPHOSPHAMIDE [Suspect]
     Dosage: 128 MG
     Dates: start: 20061109, end: 20061109
  2. DOXORUBICIN HYDROCHLORIDE [Suspect]
     Dosage: 128 MG
     Dates: end: 20061109

REACTIONS (18)
  - ALANINE AMINOTRANSFERASE INCREASED [None]
  - ANOREXIA [None]
  - ASPARTATE AMINOTRANSFERASE INCREASED [None]
  - ASTHENIA [None]
  - BACTERAEMIA [None]
  - BLOOD CREATININE INCREASED [None]
  - CAMPYLOBACTER INFECTION [None]
  - CHILLS [None]
  - COUGH [None]
  - DEHYDRATION [None]
  - DIZZINESS [None]
  - JUGULAR VEIN THROMBOSIS [None]
  - LYMPHADENOPATHY [None]
  - NASAL CONGESTION [None]
  - PALPITATIONS [None]
  - PERITONSILLAR ABSCESS [None]
  - PHARYNGOLARYNGEAL PAIN [None]
  - PYREXIA [None]
